FAERS Safety Report 9050409 (Version 2)
Quarter: 2013Q1

REPORT INFORMATION
  Report Type: Spontaneous
  Country: US (occurrence: US)
  Receive Date: 20130205
  Receipt Date: 20130221
  Transmission Date: 20140127
  Serious: No
  Sender: FDA-Public Use
  Company Number: US-PFIZER INC-2013041986

PATIENT
  Age: 67 Year
  Sex: Female

DRUGS (5)
  1. SUTENT [Suspect]
     Indication: RENAL CANCER
     Dosage: UNK
  2. LISINOPRIL-HYDROCHLOROTHIAZIDE [Concomitant]
     Dosage: UNK
  3. OSTEO BI-FLEX ADV JOINT SHIELD [Concomitant]
     Dosage: UNK
  4. VITAMIN B6 [Concomitant]
     Dosage: UNK
  5. WARFARIN SODIUM [Concomitant]
     Dosage: UNK

REACTIONS (1)
  - Diarrhoea [Unknown]
